FAERS Safety Report 6310945-3 (Version None)
Quarter: 2009Q3

REPORT INFORMATION
  Report Type: 
  Country: None (occurrence: None)
  Receive Date: 20090817
  Receipt Date: 20090811
  Transmission Date: 20100115
  Serious: Yes (Death)
  Sender: FDA-Public Use
  Company Number: FR-B.I. PHARMACEUTICALS,INC./RIDGEFIELD-2009-DE-05251GD

PATIENT

DRUGS (6)
  1. NEVIRAPINE [Suspect]
     Indication: PROPHYLAXIS
     Route: 064
  2. NEVIRAPINE [Suspect]
     Indication: HUMAN IMMUNODEFICIENCY VIRUS TRANSMISSION
  3. ZIDOVUDINE [Suspect]
     Indication: PROPHYLAXIS
     Route: 064
  4. ZIDOVUDINE [Suspect]
     Indication: HUMAN IMMUNODEFICIENCY VIRUS TRANSMISSION
  5. TRUVADA [Suspect]
     Indication: PROPHYLAXIS
     Route: 064
  6. TRUVADA [Suspect]
     Indication: HUMAN IMMUNODEFICIENCY VIRUS TRANSMISSION

REACTIONS (1)
  - INFECTION [None]
